FAERS Safety Report 6345430-6 (Version None)
Quarter: 2009Q3

REPORT INFORMATION
  Report Type: 
  Country: None (occurrence: None)
  Receive Date: 20090909
  Receipt Date: 20090406
  Transmission Date: 20100115
  Serious: No
  Sender: FDA-Public Use
  Company Number: US-BAYER-200917890NA

PATIENT
  Age: 87 Year
  Sex: Female

DRUGS (3)
  1. ULTRAVIST 300 [Suspect]
     Indication: COMPUTERISED TOMOGRAM ABDOMEN
     Dosage: TOTAL DAILY DOSE: 110 ML  UNIT DOSE: 200 ML
     Route: 042
     Dates: start: 20090328, end: 20090328
  2. UNKNOWN CONTRAST [Concomitant]
     Route: 048
     Dates: start: 20090328, end: 20090328
  3. UNKNOWN DRUG [Concomitant]
     Indication: PREMEDICATION

REACTIONS (1)
  - PRURITUS [None]
